FAERS Safety Report 17785016 (Version 1)
Quarter: 2020Q2

REPORT INFORMATION
  Report Type: Spontaneous
  Country: US (occurrence: US)
  Receive Date: 20200514
  Receipt Date: 20200514
  Transmission Date: 20200714
  Serious: Yes (Disabling, Other)
  Sender: FDA-Public Use
  Company Number: None

PATIENT
  Age: 24 Year
  Sex: Male
  Weight: 65.25 kg

DRUGS (1)
  1. FINASTERIDE 1-MG TABLET [Suspect]
     Active Substance: FINASTERIDE
     Indication: ANDROGENETIC ALOPECIA
     Route: 048
     Dates: start: 20191116, end: 20191116

REACTIONS (13)
  - Muscle contractions involuntary [None]
  - Anxiety [None]
  - Feeling abnormal [None]
  - Myalgia [None]
  - Vision blurred [None]
  - Asthenia [None]
  - Confusional state [None]
  - Eye pain [None]
  - Headache [None]
  - Dysarthria [None]
  - Arthralgia [None]
  - Dizziness [None]
  - Paraesthesia [None]

NARRATIVE: CASE EVENT DATE: 20191116
